FAERS Safety Report 6631627-4 (Version None)
Quarter: 2010Q1

REPORT INFORMATION
  Report Type: 
  Country: None (occurrence: None)
  Receive Date: 20100312
  Receipt Date: 20100301
  Transmission Date: 20100710
  Serious: Yes (Other)
  Sender: FDA-Public Use
  Company Number: AU-PFIZER INC-2010025524

PATIENT
  Sex: Male

DRUGS (2)
  1. SUTENT [Suspect]
     Indication: RENAL CELL CARCINOMA
     Dosage: UNK
  2. SORAFENIB [Suspect]
     Indication: RENAL CELL CARCINOMA

REACTIONS (8)
  - DIARRHOEA [None]
  - DISEASE PROGRESSION [None]
  - DRUG INEFFECTIVE [None]
  - FATIGUE [None]
  - RASH GENERALISED [None]
  - RENAL CELL CARCINOMA [None]
  - SKIN EXFOLIATION [None]
  - URTICARIA [None]
